FAERS Safety Report 6355866-5 (Version None)
Quarter: 2009Q3

REPORT INFORMATION
  Report Type: 
  Country: None (occurrence: None)
  Receive Date: 20090915
  Receipt Date: 20090904
  Transmission Date: 20100115
  Serious: Yes (Hospitalization)
  Sender: FDA-Public Use
  Company Number: US-ELI_LILLY_AND_COMPANY-US200909001987

PATIENT
  Sex: Female

DRUGS (1)
  1. FORTEO [Suspect]
     Dosage: UNK, UNKNOWN
     Dates: start: 20090804

REACTIONS (7)
  - BREAST PAIN [None]
  - DIARRHOEA [None]
  - FATIGUE [None]
  - HAEMATOMA [None]
  - HOSPITALISATION [None]
  - OEDEMA PERIPHERAL [None]
  - PAIN [None]
